FAERS Safety Report 6661685-2 (Version None)
Quarter: 2010Q1

REPORT INFORMATION
  Report Type: 
  Country: None (occurrence: None)
  Receive Date: 20100331
  Receipt Date: 20090415
  Transmission Date: 20100710
  Serious: Yes (Other)
  Sender: FDA-Public Use
  Company Number: US-BRISTOL-MYERS SQUIBB COMPANY-14588891

PATIENT
  Age: 76 Year
  Sex: Male
  Weight: 69 kg

DRUGS (10)
  1. ERBITUX [Suspect]
     Indication: HEAD AND NECK CANCER
  2. OXYCONTIN [Concomitant]
  3. WELLBUTRIN [Concomitant]
  4. CELEXA [Concomitant]
  5. LANTUS [Concomitant]
     Dosage: LANTUS INSULIN
  6. COREG [Concomitant]
  7. LASIX [Concomitant]
  8. DECADRON [Concomitant]
     Indication: PREMEDICATION
  9. ZANTAC [Concomitant]
     Indication: PREMEDICATION
  10. BENADRYL [Concomitant]
     Indication: PREMEDICATION
     Dosage: 1 DF = 25 (UNITS NOT PROVIDED)

REACTIONS (1)
  - INFUSION RELATED REACTION [None]
